FAERS Safety Report 4677391-X (Version None)
Quarter: 2005Q2

REPORT INFORMATION
  Report Type: 
  Country: None (occurrence: None)
  Receive Date: 20050526
  Receipt Date: 20050526
  Transmission Date: 20051028
  Serious: No
  Sender: FDA-Public Use
  Company Number: None

PATIENT
  Age: 54 Year
  Sex: Female
  Weight: 67.586 kg

DRUGS (7)
  1. LIPITOR [Suspect]
     Indication: HYPERLIPIDAEMIA
     Dosage: 10 MG 1 PO QD
     Route: 048
     Dates: start: 20041025, end: 20041108
  2. SINGULAIR [Concomitant]
  3. ZYRTEC [Concomitant]
  4. ADVAIR DISKUS 100/50 [Concomitant]
  5. VISELL PATCH [Concomitant]
  6. CALCIUM AND VIT D [Concomitant]
  7. ASPIRIN [Concomitant]

REACTIONS (6)
  - ASTHENIA [None]
  - CHEST DISCOMFORT [None]
  - CHEST PAIN [None]
  - FEELING ABNORMAL [None]
  - MYALGIA [None]
  - TREMOR [None]
